FAERS Safety Report 13611822 (Version 3)
Quarter: 2017Q3

REPORT INFORMATION
  Report Type: Spontaneous
  Country: US (occurrence: US)
  Receive Date: 20170605
  Receipt Date: 20170710
  Transmission Date: 20171127
  Serious: Yes (Hospitalization)
  Sender: FDA-Public Use
  Company Number: US-CELGENEUS-USA-2016082183

PATIENT
  Age: 66 Year
  Sex: Male
  Weight: 74.91 kg

DRUGS (10)
  1. REVLIMID [Suspect]
     Active Substance: LENALIDOMIDE
     Dosage: 10 MILLIGRAM
     Route: 048
     Dates: start: 201410
  2. REVLIMID [Suspect]
     Active Substance: LENALIDOMIDE
     Dosage: 5 MILLIGRAM
     Route: 048
     Dates: start: 20140710
  3. NORVASC [Concomitant]
     Active Substance: AMLODIPINE BESYLATE
     Indication: HYPERTENSION
     Dosage: 10 MILLIGRAM
     Route: 065
  4. REVLIMID [Suspect]
     Active Substance: LENALIDOMIDE
     Indication: PLASMA CELL MYELOMA
     Dosage: 15 MILLIGRAM
     Route: 048
     Dates: start: 201308
  5. ACYCLOVIR. [Concomitant]
     Active Substance: ACYCLOVIR
     Indication: PRODUCT USED FOR UNKNOWN INDICATION
     Dosage: 8 MILLIGRAM
     Route: 065
  6. COLESTIPOL [Concomitant]
     Active Substance: COLESTIPOL
     Indication: BLOOD CHOLESTEROL
     Dosage: 2 GRAM
     Route: 065
  7. PRILOSEC [Concomitant]
     Active Substance: OMEPRAZOLE MAGNESIUM
     Indication: GASTROOESOPHAGEAL REFLUX DISEASE
     Dosage: 20 MILLIGRAM
     Route: 065
  8. FINASTERIDE. [Concomitant]
     Active Substance: FINASTERIDE
     Indication: BENIGN PROSTATIC HYPERPLASIA
     Route: 065
  9. FLOMEX [Concomitant]
     Indication: BENIGN PROSTATIC HYPERPLASIA
     Dosage: .8 MILLIGRAM
     Route: 065
  10. REVLIMID [Suspect]
     Active Substance: LENALIDOMIDE
     Dosage: 15 MILLIGRAM
     Route: 048
     Dates: start: 201505, end: 20170611

REACTIONS (11)
  - Gastritis [Recovered/Resolved]
  - Anxiety [Recovered/Resolved]
  - Klebsiella infection [Recovering/Resolving]
  - Stress [Recovered/Resolved]
  - Diarrhoea [Recovered/Resolved]
  - Colitis [Recovering/Resolving]
  - Enteritis [Recovering/Resolving]
  - Abscess [Recovering/Resolving]
  - Cellulitis staphylococcal [Recovered/Resolved]
  - Fistula [Recovering/Resolving]
  - Abdominal pain upper [Recovered/Resolved]

NARRATIVE: CASE EVENT DATE: 201608
